FAERS Safety Report 10658702 (Version 4)
Quarter: 2018Q4

REPORT INFORMATION
  Report Type: Report from Study
  Country: JP (occurrence: JP)
  Receive Date: 20141217
  Receipt Date: 20181211
  Transmission Date: 20190204
  Serious: Yes (Other)
  Sender: FDA-Public Use
  Company Number: JP-GILEAD-2014-0127396

PATIENT
  Age: 24 Year
  Sex: Male

DRUGS (17)
  1. ZYRTEC [Concomitant]
     Active Substance: CETIRIZINE HYDROCHLORIDE
     Indication: RASH
     Dosage: 10 MG, QD
     Route: 048
     Dates: start: 20090306, end: 20090308
  2. DEPAKENE [Concomitant]
     Active Substance: VALPROIC ACID
     Indication: SEIZURE PROPHYLAXIS
     Dosage: UNK
     Route: 048
     Dates: start: 20090126
  3. NAUZELIN [Concomitant]
     Active Substance: DOMPERIDONE
     Indication: NAUSEA
     Dosage: 10 MG, BID
     Route: 048
     Dates: start: 20090227, end: 20090302
  4. EMTRICITABINE/TENOFOVIR DISOPROXIL FUMARATE [Suspect]
     Active Substance: EMTRICITABINE\TENOFOVIR DISOPROXIL FUMARATE
     Indication: HIV INFECTION
     Dosage: 1 DF, QD
     Route: 048
     Dates: start: 20090223, end: 20170321
  5. MYCOBUTIN [Concomitant]
     Active Substance: RIFABUTIN
     Indication: DISSEMINATED TUBERCULOSIS
     Dosage: 150 MG, QD
     Route: 048
     Dates: start: 20090223, end: 20091216
  6. LEXIVA [Concomitant]
     Active Substance: FOSAMPRENAVIR CALCIUM
     Indication: HIV INFECTION
     Dosage: 1400 MG, BID
     Route: 048
     Dates: start: 20090223, end: 20130307
  7. SYMBICORT [Concomitant]
     Active Substance: BUDESONIDE\FORMOTEROL FUMARATE DIHYDRATE
     Indication: ASTHMA
     Dosage: 2 DF, BID
     Route: 055
     Dates: start: 20120828, end: 20120918
  8. E KEPPRA [Concomitant]
     Active Substance: LEVETIRACETAM
     Indication: SEIZURE PROPHYLAXIS
     Dosage: 500 MG, QD
     Route: 065
     Dates: start: 20090223, end: 20090307
  9. EBUTOL [ETHAMBUTOL] [Concomitant]
     Indication: DISSEMINATED TUBERCULOSIS
     Dosage: 750 MG, QD
     Route: 048
     Dates: start: 20090120, end: 20091216
  10. PREZISTANAIVE [Concomitant]
     Active Substance: DARUNAVIR
     Indication: HIV INFECTION
     Dosage: 800 MG, QD
     Route: 048
     Dates: start: 20130308, end: 20151013
  11. MEPLON RED [Concomitant]
     Indication: PNEUMOCYSTIS JIROVECII PNEUMONIA
     Dosage: 1500 MG
     Route: 048
     Dates: start: 20090122, end: 20090313
  12. AVELOX [Concomitant]
     Active Substance: MOXIFLOXACIN HYDROCHLORIDE
     Indication: DISSEMINATED TUBERCULOSIS
     Dosage: 400 MG, QD
     Route: 048
     Dates: start: 20090120, end: 20091216
  13. ALESION [Concomitant]
     Active Substance: EPINASTINE HYDROCHLORIDE
     Indication: RASH
     Dosage: 20 MG, QD
     Route: 048
     Dates: start: 20090309, end: 20090313
  14. SYMBICORT [Concomitant]
     Active Substance: BUDESONIDE\FORMOTEROL FUMARATE DIHYDRATE
     Dosage: 2 UNK
     Route: 055
     Dates: start: 20120919
  15. NORVIR [Concomitant]
     Active Substance: RITONAVIR
     Indication: HIV INFECTION
     Dosage: 100 MG, QD
     Route: 048
     Dates: start: 20130308, end: 20151013
  16. SODIUM VALPROATE [Concomitant]
     Active Substance: VALPROATE SODIUM
     Indication: EPILEPSY
     Dosage: 1000 MG, BID
     Route: 048
  17. DERMOVATE [Concomitant]
     Active Substance: CLOBETASOL
     Indication: RASH
     Dosage: UNK
     Route: 003
     Dates: start: 20090309, end: 20090313

REACTIONS (1)
  - HIV-associated neurocognitive disorder [Not Recovered/Not Resolved]

NARRATIVE: CASE EVENT DATE: 201301
